FAERS Safety Report 6419160-6 (Version None)
Quarter: 2009Q4

REPORT INFORMATION
  Report Type: 
  Country: None (occurrence: None)
  Receive Date: 20091029
  Receipt Date: 20091022
  Transmission Date: 20100525
  Serious: Yes (Other)
  Sender: FDA-Public Use
  Company Number: US-ROCHE-664285

PATIENT
  Sex: Male
  Weight: 97.1 kg

DRUGS (1)
  1. CAPECITABINE [Suspect]
     Indication: COLON CANCER
     Route: 048
     Dates: start: 20090404

REACTIONS (2)
  - BASAL CELL CARCINOMA [None]
  - SKIN FISSURES [None]
